FAERS Safety Report 6315524-X (Version None)
Quarter: 2009Q3

REPORT INFORMATION
  Report Type: 
  Country: None (occurrence: None)
  Receive Date: 20090819
  Receipt Date: 20090810
  Transmission Date: 20100115
  Serious: Yes (Other)
  Sender: FDA-Public Use
  Company Number: US-PFIZER INC-2009240151

PATIENT
  Sex: Female
  Weight: 58.957 kg

DRUGS (6)
  1. PROVERA [Suspect]
     Indication: HORMONE REPLACEMENT THERAPY
     Dosage: 2.5 AND 10MG
     Route: 048
     Dates: start: 19850101, end: 19971101
  2. PREMARIN [Suspect]
     Indication: HORMONE REPLACEMENT THERAPY
     Dosage: 0.625 MG, UNK
     Dates: end: 19971101
  3. PREMPRO [Suspect]
     Indication: HORMONE REPLACEMENT THERAPY
     Dosage: 0.625 MG, UNK
     Dates: start: 19971201, end: 20010401
  4. TEMOVATE [Concomitant]
     Dosage: UNK
     Dates: start: 19940101
  5. FLEXERIL [Concomitant]
     Indication: PAIN
     Dosage: UNK
     Dates: start: 19890101, end: 20060101
  6. LIPITOR [Concomitant]
     Indication: BLOOD CHOLESTEROL INCREASED
     Dosage: UNK
     Dates: end: 20050101

REACTIONS (1)
  - BREAST CANCER FEMALE [None]
